FAERS Safety Report 6039279-1 (Version None)
Quarter: 2009Q1

REPORT INFORMATION
  Report Type: 
  Country: None (occurrence: None)
  Receive Date: 20090115
  Receipt Date: 20090113
  Transmission Date: 20090719
  Serious: Yes (Death)
  Sender: FDA-Public Use
  Company Number: PHHY2009JP01236

PATIENT
  Sex: Female

DRUGS (4)
  1. ZOLEDRONIC ACID [Suspect]
     Indication: BREAST CANCER
     Dosage: 4 MG, QMO
     Route: 042
     Dates: start: 20071212, end: 20080131
  2. GASTER [Concomitant]
     Dosage: 20MG
     Route: 048
     Dates: start: 20071212, end: 20080131
  3. OXYCONTIN [Concomitant]
     Dosage: 20MG
     Route: 048
     Dates: start: 20071212, end: 20080131
  4. SELBEX [Concomitant]
     Dosage: 1.5G
     Route: 048
     Dates: start: 20071212, end: 20080131

REACTIONS (3)
  - BLOOD UREA ABNORMAL [None]
  - DEATH [None]
  - RENAL IMPAIRMENT [None]
